FAERS Safety Report 16541226 (Version 3)
Quarter: 2019Q3

REPORT INFORMATION
  Report Type: Report from Study
  Country: US (occurrence: US)
  Receive Date: 20190708
  Receipt Date: 20190725
  Transmission Date: 20191004
  Serious: Yes (Hospitalization)
  Sender: FDA-Public Use
  Company Number: US-PFIZER INC-2017140203

PATIENT
  Age: 36 Year
  Sex: Female
  Weight: 101.6 kg

DRUGS (11)
  1. AVELUMAB [Suspect]
     Active Substance: AVELUMAB
     Indication: OVARIAN CANCER
     Dosage: 1042 MG, CIRCLE ONE (CHEMO PHASE): EVERY 3 WEEKS
     Route: 042
     Dates: start: 20161212
  2. ATIVAN [Concomitant]
     Active Substance: LORAZEPAM
     Indication: NAUSEA
  3. PERCOCET [Concomitant]
     Active Substance: ACETAMINOPHEN\OXYCODONE HYDROCHLORIDE
     Indication: PAIN
     Dosage: [OXYCODONE HYDROCHLORIDE 10 MG]/[PARACETAMOL 325 MG], 0.5- 1 TAB Q 4-6 HOURS AS NEEDED
     Route: 048
     Dates: start: 20170213
  4. ATIVAN [Concomitant]
     Active Substance: LORAZEPAM
     Indication: ANXIETY
     Dosage: 1 MG,  1 TAB EVERY 6 HOURS, AS NEEDED
     Route: 048
     Dates: start: 20170102
  5. CARBOPLATIN. [Concomitant]
     Active Substance: CARBOPLATIN
     Indication: OVARIAN CANCER
     Dosage: 900 MG, EVERY 3 WEEKS
     Route: 042
     Dates: start: 20161212
  6. PROMETHAZINE [Concomitant]
     Active Substance: PROMETHAZINE HYDROCHLORIDE
     Indication: VOMITING
  7. PACLITAXEL. [Concomitant]
     Active Substance: PACLITAXEL
     Indication: OVARIAN CANCER
     Dosage: 170 MG, EVERY 3 WEEKS
     Route: 042
     Dates: start: 20161212
  8. GABAPENTIN. [Concomitant]
     Active Substance: GABAPENTIN
     Indication: NEUROPATHY PERIPHERAL
     Dosage: 300 MG (1 TAB), 1X/DAY (AT BEDTIME)
     Route: 048
     Dates: start: 20170130, end: 20170131
  9. PROCHLORPERAZINE. [Concomitant]
     Active Substance: PROCHLORPERAZINE
     Indication: NAUSEA
     Dosage: 10 MG, 1 PO 4 TIMES DAILY, AS NEEDED
     Route: 048
     Dates: start: 20161221
  10. LEVAQUIN [Concomitant]
     Active Substance: LEVOFLOXACIN
     Indication: PYREXIA
     Dosage: 500 MG, TAKE 1 IF FEVER MORE THAN 100.4 AND CALL MD, AS NEEDED
     Route: 048
  11. PROMETHAZINE [Concomitant]
     Active Substance: PROMETHAZINE HYDROCHLORIDE
     Indication: NAUSEA
     Dosage: 25 MG (1 TABLET), Q6HRS, AS NEEDED
     Route: 048
     Dates: start: 20161221

REACTIONS (1)
  - Deep vein thrombosis [Recovered/Resolved]

NARRATIVE: CASE EVENT DATE: 20170326
